FAERS Safety Report 8244903-9 (Version None)
Quarter: 2012Q1

REPORT INFORMATION
  Report Type: 
  Country: None (occurrence: None)
  Receive Date: 20120329
  Receipt Date: 20110826
  Transmission Date: 20120608
  Serious: No
  Sender: FDA-Public Use
  Company Number: US-MYLANLABS-2011S1018046

PATIENT
  Age: 61 Year
  Sex: Female
  Weight: 54.43 kg

DRUGS (7)
  1. BISOPROLOL FUMARATE AND HYDROCHLOROTHIAZIDE [Concomitant]
     Indication: BLOOD PRESSURE INCREASED
     Dosage: 5MG/6.25MG
  2. ZOLPIDEM [Concomitant]
     Indication: INSOMNIA
  3. NEXIUM [Concomitant]
     Indication: GASTROOESOPHAGEAL REFLUX DISEASE
     Dates: start: 20110601
  4. FENTANYL-100 [Suspect]
     Indication: NECK PAIN
     Dosage: USED ONLY ONE PATCH FOR ONE DAY
     Route: 062
     Dates: start: 20110825, end: 20110826
  5. LISINOPRIL [Concomitant]
     Indication: BLOOD PRESSURE INCREASED
     Dosage: USING 1/2 OF A 10MG LISINOPRIL TABLET
     Dates: start: 20110601
  6. CRESTOR [Concomitant]
     Indication: BLOOD CHOLESTEROL INCREASED
  7. HYDROCODONE BITARTRATE [Concomitant]
     Indication: BREAKTHROUGH PAIN
     Dosage: 5MG/325MG
     Dates: start: 20110701

REACTIONS (3)
  - PALPITATIONS [None]
  - DYSPNOEA [None]
  - PRURITUS GENERALISED [None]
